FAERS Safety Report 19947591 (Version 1)
Quarter: 2021Q4

REPORT INFORMATION
  Report Type: Spontaneous
  Country: ES (occurrence: ES)
  Receive Date: 20211012
  Receipt Date: 20211012
  Transmission Date: 20220304
  Serious: Yes (Death, Other)
  Sender: FDA-Public Use
  Company Number: ES-CELLTRION HEALTHCARE HUNGARY KFT-2021ES008266

PATIENT

DRUGS (8)
  1. MYCOPHENOLATE MOFETIL [Suspect]
     Active Substance: MYCOPHENOLATE MOFETIL
     Indication: Prophylaxis against graft versus host disease
     Dosage: 10 MILLIGRAM/KILOGRAM, QD
  2. MYCOPHENOLATE MOFETIL [Suspect]
     Active Substance: MYCOPHENOLATE MOFETIL
     Indication: Immune tolerance induction
     Dosage: 5-10MG/KG/BID (MEDIAN 21 DAYS, RANGE 14-28, 2-4 WEEKS BEFORE INFUSION DATE)
  3. TACROLIMUS [Suspect]
     Active Substance: TACROLIMUS
     Indication: Prophylaxis against graft versus host disease
     Dosage: UNK
  4. TACROLIMUS [Suspect]
     Active Substance: TACROLIMUS
     Indication: Immune tolerance induction
     Dosage: 0.6 MILLIGRAM/KILOGRAM, QD (0.06MG/KG/DAY X 4 WEEKS)
  5. RITUXIMAB [Suspect]
     Active Substance: RITUXIMAB
     Indication: Immune tolerance induction
     Dosage: 375 MILLIGRAM, QW (MEDIAN DOSES 3.5 DOSES, RANGE 1-6, WEEKLY FROM DAY 35)
  6. RITUXIMAB [Suspect]
     Active Substance: RITUXIMAB
     Dosage: 375 MILLIGRAM, QW (MEDIAN DOSES 3.5 DOSES, RANGE 1-6, WEEKLY FROM DAY 35)
  7. RITUXIMAB [Suspect]
     Active Substance: RITUXIMAB
     Dosage: 375 MILLIGRAM, QW (MEDIAN DOSES 3.5 DOSES, RANGE 1-6, WEEKLY FROM DAY 35)
  8. CYCLOPHOSPHAMIDE [Suspect]
     Active Substance: CYCLOPHOSPHAMIDE
     Indication: Prophylaxis against graft versus host disease
     Dosage: 50 MILLIGRAM/KILOGRAM, QD (50 MG/KG/DAY ON DAYS PLUS 3 AND PLUS 4)

REACTIONS (5)
  - Septic shock [Fatal]
  - Bacteraemia [Fatal]
  - Off label use [Unknown]
  - Transplant failure [Recovered/Resolved]
  - Drug effective for unapproved indication [Unknown]
